FAERS Safety Report 19558655 (Version 11)
Quarter: 2022Q1

REPORT INFORMATION
  Report Type: Report from Study
  Country: NZ (occurrence: NZ)
  Receive Date: 20210715
  Receipt Date: 20220330
  Transmission Date: 20220423
  Serious: Yes (Hospitalization)
  Sender: FDA-Public Use
  Company Number: NZ-KARYOPHARM-2021KPT000912

PATIENT
  Age: 68 Year
  Sex: Male
  Weight: 101 kg

DRUGS (15)
  1. SELINEXOR [Suspect]
     Active Substance: SELINEXOR
     Indication: Plasma cell myeloma
     Dosage: 80 MG, WEEKLY
     Route: 048
     Dates: start: 20210510, end: 202106
  2. SELINEXOR [Suspect]
     Active Substance: SELINEXOR
     Dosage: 80 MG, WEEKLY
     Route: 048
     Dates: start: 202107, end: 20210823
  3. SELINEXOR [Suspect]
     Active Substance: SELINEXOR
     Dosage: UNK
     Dates: start: 20210927, end: 202201
  4. BORTEZOMIB [Concomitant]
     Active Substance: BORTEZOMIB
     Indication: Plasma cell myeloma
     Dosage: UNK
     Dates: start: 20210511
  5. BORTEZOMIB [Concomitant]
     Active Substance: BORTEZOMIB
     Dosage: UNK
     Dates: start: 20210927
  6. DEXAMETHASONE [Concomitant]
     Active Substance: DEXAMETHASONE
     Indication: Plasma cell myeloma
     Dosage: UNK
     Dates: start: 20210511
  7. MORPHINE SULFATE [Concomitant]
     Active Substance: MORPHINE SULFATE
     Dosage: 100 MG, BID
  8. MORPHINE SULFATE [Concomitant]
     Active Substance: MORPHINE SULFATE
     Dosage: 10 MG, PRN
  9. OMEPRAZOLE [Concomitant]
     Active Substance: OMEPRAZOLE
     Dosage: 20 MG, QD
  10. ACETAMINOPHEN [Concomitant]
     Active Substance: ACETAMINOPHEN
     Dosage: 1 G, PRN
  11. RIVAROXABAN [Concomitant]
     Active Substance: RIVAROXABAN
     Dosage: 20 MG, QD
  12. GLICLAZIDE [Concomitant]
     Active Substance: GLICLAZIDE
     Dosage: 40 MG, BID
  13. VALACYCLOVIR HYDROCHLORIDE [Concomitant]
     Active Substance: VALACYCLOVIR HYDROCHLORIDE
     Dosage: 500 MG, QD
  14. GABAPENTIN [Concomitant]
     Active Substance: GABAPENTIN
     Dosage: 600 MG, BID
  15. COTRIMOXAZOLE [Concomitant]
     Active Substance: SULFAMETHOXAZOLE\TRIMETHOPRIM
     Dosage: 960 MG, 3X/WEEK

REACTIONS (6)
  - Plasmacytoma [Not Recovered/Not Resolved]
  - Plasma cell myeloma [Unknown]
  - Thrombocytopenia [Recovering/Resolving]
  - Neutropenia [Unknown]
  - Pyrexia [Recovered/Resolved]
  - Rhinitis [Recovered/Resolved]

NARRATIVE: CASE EVENT DATE: 20210501
